FAERS Safety Report 7222760-7 (Version None)
Quarter: 2011Q1

REPORT INFORMATION
  Report Type: 
  Country: None (occurrence: None)
  Receive Date: 20110106
  Receipt Date: 20110106
  Transmission Date: 20110831
  Serious: Yes (Hospitalization)
  Sender: FDA-Public Use
  Company Number: None

PATIENT
  Age: 82 Year
  Sex: Female
  Weight: 74.2 kg

DRUGS (10)
  1. COUMADIN [Suspect]
     Indication: ATRIAL FIBRILLATION
     Dosage: 1MG M T TH S S PO
     Route: 048
  2. TOPROL-XL [Concomitant]
  3. FUROSEMIDE [Concomitant]
  4. COUMADIN [Suspect]
     Indication: ATRIAL FIBRILLATION
     Dosage: 2MG WED + FRI PO
     Route: 048
  5. COZAAR [Concomitant]
  6. LEROXYL [Concomitant]
  7. CELEXA [Concomitant]
  8. ZETIA [Concomitant]
  9. LOVASTATIN [Concomitant]
  10. GLIMEPIRIDE [Concomitant]

REACTIONS (7)
  - HYPERVOLAEMIA [None]
  - PETECHIAE [None]
  - HYPOTENSION [None]
  - OESOPHAGEAL DISORDER [None]
  - ANKLE FRACTURE [None]
  - FALL [None]
  - DIVERTICULUM [None]
